FAERS Safety Report 7271605-8 (Version None)
Quarter: 2011Q1

REPORT INFORMATION
  Report Type: 
  Country: None (occurrence: None)
  Receive Date: 20110128
  Receipt Date: 20110128
  Transmission Date: 20110831
  Serious: Yes (Other)
  Sender: FDA-Public Use
  Company Number: None

PATIENT
  Age: 23 Year
  Sex: Female

DRUGS (1)
  1. MIRENA [Suspect]
     Indication: CONTRACEPTION
     Dates: start: 20080913, end: 20100930

REACTIONS (14)
  - FATIGUE [None]
  - SUICIDAL IDEATION [None]
  - VAGINITIS BACTERIAL [None]
  - HAEMORRHAGE [None]
  - PELVIC PAIN [None]
  - MUSCLE SPASMS [None]
  - QUALITY OF LIFE DECREASED [None]
  - ALOPECIA [None]
  - AMENORRHOEA [None]
  - MOOD SWINGS [None]
  - WEIGHT INCREASED [None]
  - ARTHRALGIA [None]
  - BACK PAIN [None]
  - PALPITATIONS [None]
